FAERS Safety Report 18143361 (Version 1)
Quarter: 2020Q3

REPORT INFORMATION
  Report Type: Spontaneous
  Country: US (occurrence: US)
  Receive Date: 20200812
  Receipt Date: 20200812
  Transmission Date: 20201103
  Serious: Yes (Death, Other)
  Sender: FDA-Public Use
  Company Number: US-PURDUE-USA-2020-0160433

PATIENT
  Sex: Male

DRUGS (4)
  1. OXYCONTIN [Suspect]
     Active Substance: OXYCODONE HYDROCHLORIDE
     Indication: INTERVERTEBRAL DISC DISORDER
     Dosage: UNK
     Route: 048
  2. MS CONTIN [Suspect]
     Active Substance: MORPHINE SULFATE
     Indication: INTERVERTEBRAL DISC DISORDER
     Dosage: UNK
     Route: 048
  3. OXYIR [Suspect]
     Active Substance: OXYCODONE HYDROCHLORIDE
     Indication: INTERVERTEBRAL DISC DISORDER
     Dosage: UNK
     Route: 048
  4. MSIR [Suspect]
     Active Substance: MORPHINE SULFATE
     Indication: INTERVERTEBRAL DISC DISORDER
     Dosage: UNK
     Route: 048

REACTIONS (8)
  - Skin discolouration [Unknown]
  - Dyspnoea [Unknown]
  - Respiratory depression [Unknown]
  - Heart rate decreased [Unknown]
  - Loss of consciousness [Unknown]
  - Death [Fatal]
  - Overdose [Unknown]
  - Confusional state [Unknown]
